FAERS Safety Report 11950155 (Version 1)
Quarter: 2016Q1

REPORT INFORMATION
  Report Type: Other
  Country: US (occurrence: US)
  Receive Date: 20160125
  Receipt Date: 20160125
  Transmission Date: 20160526
  Serious: Yes (Death)
  Sender: FDA-Public Use
  Company Number: US-LEHIGH_VALLEY-USA-POI0580201600071

PATIENT
  Age: 44 Year
  Sex: Female

DRUGS (7)
  1. PAROXETINE [Suspect]
     Active Substance: PAROXETINE\PAROXETINE HYDROCHLORIDE
     Dates: end: 2014
  2. QUETIAPINE [Suspect]
     Active Substance: QUETIAPINE
     Dates: end: 2014
  3. OXYCODONE HCL CAPSULES [Suspect]
     Active Substance: OXYCODONE HYDROCHLORIDE
     Dates: end: 2014
  4. LAMOTRIGINE. [Suspect]
     Active Substance: LAMOTRIGINE
     Dates: end: 2014
  5. BUPROPION. [Suspect]
     Active Substance: BUPROPION
     Dates: end: 2014
  6. HYDROCHLOROTHIAZIDE. [Suspect]
     Active Substance: HYDROCHLOROTHIAZIDE
     Dates: end: 2014
  7. ALPRAZOLAM. [Suspect]
     Active Substance: ALPRAZOLAM
     Dates: end: 2014

REACTIONS (1)
  - Completed suicide [Fatal]

NARRATIVE: CASE EVENT DATE: 2014
